FAERS Safety Report 5760119-X (Version None)
Quarter: 2008Q2

REPORT INFORMATION
  Report Type: 
  Country: None (occurrence: None)
  Receive Date: 20080605
  Receipt Date: 20080530
  Transmission Date: 20081010
  Serious: Yes (Hospitalization, Other)
  Sender: FDA-Public Use
  Company Number: DE-BOEHRINGER INGELHEIM GMBH, GERMANY-2008-BP-08552RO

PATIENT
  Age: 27 Year
  Sex: Male

DRUGS (3)
  1. ZOLPIDEM [Suspect]
     Indication: INSOMNIA
  2. ZOLPIDEM [Suspect]
  3. CARBAMAZEPINE [Concomitant]
     Indication: DETOXIFICATION

REACTIONS (9)
  - AGITATION [None]
  - DRUG DEPENDENCE [None]
  - DRUG WITHDRAWAL CONVULSIONS [None]
  - FALL [None]
  - HYPERACUSIS [None]
  - HYPERHIDROSIS [None]
  - PARAPLEGIA [None]
  - SPINAL FRACTURE [None]
  - WITHDRAWAL SYNDROME [None]
